FAERS Safety Report 7621142-3 (Version None)
Quarter: 2011Q3

REPORT INFORMATION
  Report Type: 
  Country: None (occurrence: None)
  Receive Date: 20110719
  Receipt Date: 20110714
  Transmission Date: 20111222
  Serious: Yes (Death)
  Sender: FDA-Public Use
  Company Number: PHHY2011AT63018

PATIENT
  Sex: Female

DRUGS (11)
  1. EZETIMIBE [Concomitant]
     Dosage: 1 DF, DAILY
     Route: 048
  2. CLOPIDOGREL [Concomitant]
     Dosage: 1 DF, DAILY
     Route: 048
     Dates: start: 20110118
  3. ASPIRIN [Concomitant]
     Dosage: 1 DF, DAILY
     Route: 048
     Dates: start: 20110118
  4. AMLODIPINE [Concomitant]
     Dosage: 2 DF, DAILY
     Route: 048
     Dates: start: 20110228
  5. AFINITOR [Suspect]
     Dosage: 10 MG, DAILY
     Dates: start: 20110215
  6. CARVEDILOL [Concomitant]
     Dosage: 25 MG, BID
     Route: 048
  7. PANTOPRAZOLE SODIUM [Concomitant]
     Dosage: 1 DF, DAILY
     Route: 048
  8. EXFORGE [Concomitant]
     Dosage: 1 DF, BID
     Route: 048
     Dates: start: 20110118, end: 20110228
  9. THYREX [Concomitant]
     Dosage: 0.5 DF, DAILY
     Route: 048
  10. INDAPAMIDE [Concomitant]
     Dosage: 1 DF, DAILY
     Route: 048
     Dates: start: 20110228
  11. RILMENIDINE [Concomitant]
     Dosage: 1 MG, BID
     Route: 048

REACTIONS (4)
  - CARDIAC FAILURE [None]
  - NEOPLASM MALIGNANT [None]
  - NEOPLASM PROGRESSION [None]
  - ISCHAEMIC CARDIOMYOPATHY [None]
